FAERS Safety Report 22867668 (Version 2)
Quarter: 2025Q1

REPORT INFORMATION
  Report Type: Report from Study
  Country: US (occurrence: US)
  Receive Date: 20230825
  Receipt Date: 20250103
  Transmission Date: 20250408
  Serious: No
  Sender: GENMAB
  Company Number: US-GENMAB-2023-01187

PATIENT
  Sex: Male

DRUGS (4)
  1. EPKINLY [Suspect]
     Active Substance: EPCORITAMAB-BYSP
     Route: 065
  2. EPKINLY [Suspect]
     Active Substance: EPCORITAMAB-BYSP
     Route: 065
  3. EPKINLY [Suspect]
     Active Substance: EPCORITAMAB-BYSP
     Route: 065
  4. EPKINLY [Suspect]
     Active Substance: EPCORITAMAB-BYSP
     Route: 065

REACTIONS (3)
  - Flushing [Unknown]
  - Feeling jittery [Unknown]
  - Tremor [Unknown]
